FAERS Safety Report 8449981-X (Version None)
Quarter: 2012Q2

REPORT INFORMATION
  Report Type: 
  Country: None (occurrence: None)
  Receive Date: 20120620
  Receipt Date: 20120618
  Transmission Date: 20120825
  Serious: Yes (Death)
  Sender: FDA-Public Use
  Company Number: PHHY2012MX052375

PATIENT
  Sex: Male

DRUGS (1)
  1. IMATINIB MESYLATE [Suspect]
     Indication: GASTROINTESTINAL STROMAL TUMOUR
     Dosage: 400 MG, UNK

REACTIONS (1)
  - DEATH [None]
